FAERS Safety Report 5803924-3 (Version None)
Quarter: 2008Q3

REPORT INFORMATION
  Report Type: 
  Country: None (occurrence: None)
  Receive Date: 20080703
  Receipt Date: 20080619
  Transmission Date: 20090109
  Serious: Yes (Death, Other)
  Sender: FDA-Public Use
  Company Number: 2006000539

PATIENT
  Age: 66 Year
  Sex: Female

DRUGS (5)
  1. ERLOTINIB (ERLOTINIB HCL) (TABLET) (ERLOTINIB HCL) [Suspect]
     Indication: NON-SMALL CELL LUNG CANCER
     Dosage: 150 MG (150 MG, QD), ORAL
     Route: 048
     Dates: start: 20051222, end: 20060904
  2. LANSOPRAZOLE [Concomitant]
  3. CATAFLAM [Concomitant]
  4. LEVOTHROXINE (LEVOTHROXINE) [Concomitant]
  5. LEVOTHYROXINE SODIUM [Concomitant]

REACTIONS (2)
  - DACTYLITIS [None]
  - PALMAR-PLANTAR ERYTHRODYSAESTHESIA SYNDROME [None]
